FAERS Safety Report 24691102 (Version 2)
Quarter: 2025Q2

REPORT INFORMATION
  Report Type: Report from Study
  Country: US (occurrence: US)
  Receive Date: 20241203
  Receipt Date: 20250410
  Transmission Date: 20250717
  Serious: Yes (Other)
  Sender: TAKEDA
  Company Number: US-TAKEDA-US202026255

PATIENT
  Sex: Female

DRUGS (2)
  1. HUMAN IMMUNOGLOBULIN G [Suspect]
     Active Substance: HUMAN IMMUNOGLOBULIN G
     Indication: Primary immunodeficiency syndrome
  2. HUMAN IMMUNOGLOBULIN G [Suspect]
     Active Substance: HUMAN IMMUNOGLOBULIN G
     Indication: IgG deficiency

REACTIONS (6)
  - Cardiac failure congestive [Unknown]
  - Skin infection [Unknown]
  - Pharyngitis streptococcal [Unknown]
  - Sinusitis [Unknown]
  - Influenza [Unknown]
  - Oropharyngeal pain [Not Recovered/Not Resolved]
